FAERS Safety Report 7489635-X (Version None)
Quarter: 2011Q2

REPORT INFORMATION
  Report Type: 
  Country: None (occurrence: None)
  Receive Date: 20110519
  Receipt Date: 20110510
  Transmission Date: 20111010
  Serious: No
  Sender: FDA-Public Use
  Company Number: US-BIOGENIDEC-2010BI043852

PATIENT
  Sex: Female

DRUGS (1)
  1. TYSABRI [Suspect]
     Indication: MULTIPLE SCLEROSIS
     Route: 042
     Dates: start: 20100707

REACTIONS (14)
  - GAIT DISTURBANCE [None]
  - ULCER [None]
  - DIVERTICULITIS [None]
  - CENTRAL VENOUS CATHETERISATION [None]
  - DIARRHOEA [None]
  - HYPOAESTHESIA [None]
  - CATHETER SITE RELATED REACTION [None]
  - SPINAL COMPRESSION FRACTURE [None]
  - VEIN DISORDER [None]
  - OSTEOPOROSIS [None]
  - BACK PAIN [None]
  - FALL [None]
  - CONFUSIONAL STATE [None]
  - PARAESTHESIA [None]
